FAERS Safety Report 17425239 (Version 2)
Quarter: 2020Q1

REPORT INFORMATION
  Report Type: Spontaneous
  Country: KR (occurrence: KR)
  Receive Date: 20200218
  Receipt Date: 20200224
  Transmission Date: 20200409
  Serious: Yes (Life-Threatening, Hospitalization, Other)
  Sender: FDA-Public Use
  Company Number: KR-STRIDES ARCOLAB LIMITED-2020SP001391

PATIENT
  Age: 65 Year
  Sex: Female

DRUGS (10)
  1. PREDNISOLONE. [Suspect]
     Active Substance: PREDNISOLONE
     Indication: IMMUNOSUPPRESSANT DRUG THERAPY
     Dosage: 20 MILLIGRAM PER DAY, TABLET, AFTER A MEAL
     Route: 048
     Dates: start: 20180726, end: 20181007
  2. PREDNISOLONE. [Suspect]
     Active Substance: PREDNISOLONE
     Indication: PEMPHIGUS
     Dosage: 5 MILLIGRAM PER DAY, TABLET, AFTER A MEAL
     Route: 048
     Dates: start: 20180726, end: 20181007
  3. LIV GAMMA                          /00025201/ [Concomitant]
     Indication: PEMPHIGUS
     Dosage: 27.5 GRAM, MIXED WITH 500 ML DEXTROSE 5 PERCENT SOLUTION AND INTRAVENOUS INFUSION (80-120 ML/HR)
     Route: 041
     Dates: start: 20180728, end: 20180731
  4. DEXTROSE. [Concomitant]
     Active Substance: DEXTROSE
     Indication: PEMPHIGUS
     Dosage: 500 MILLILITER, ONE CYCLE, 5 PERCENT SOLUTION AND IV INFUSION (80-120ML/HR)
     Route: 041
     Dates: start: 20180728, end: 20180731
  5. MYCOPHENOLATE MOFETIL. [Suspect]
     Active Substance: MYCOPHENOLATE MOFETIL
     Indication: IMMUNOSUPPRESSANT DRUG THERAPY
     Dosage: 2 DOSAGE FORM, TABLET
     Route: 048
     Dates: start: 20180726, end: 20181105
  6. MYCOPHENOLATE MOFETIL. [Suspect]
     Active Substance: MYCOPHENOLATE MOFETIL
     Indication: PEMPHIGUS
  7. TRUXIMA [Suspect]
     Active Substance: RITUXIMAB-ABBS
     Indication: PEMPHIGUS
     Dosage: 2 DOSAGE FORM FOR 2 WEEKS,2 VIAL MIXED WITH SALINE AND IV INFUSION (80 ML/HR)
     Route: 041
     Dates: start: 20180810, end: 20180823
  8. SODIUM CHLORIDE. [Concomitant]
     Active Substance: SODIUM CHLORIDE
     Indication: PEMPHIGUS
     Dosage: 500 MILLILITER, 2 WEEK, MIXED WITH 1000MG RITUXIMAB, IV INFUSION (80ML/HR)
     Route: 041
     Dates: start: 20180727, end: 20180809
  9. TRUXIMA [Suspect]
     Active Substance: RITUXIMAB-ABBS
     Indication: IMMUNOSUPPRESSANT DRUG THERAPY
     Dosage: 2 DOSAGE FORM FOR 2 WEEKS,2 VIAL MIXED WITH SALINE AND IV INFUSION (80 ML/HR)
     Route: 041
     Dates: start: 20180727, end: 20180809
  10. SODIUM CHLORIDE. [Concomitant]
     Active Substance: SODIUM CHLORIDE
     Dosage: 500 MILLILITER, 2 WEEK, MIXED WITH 1000MG RITUXIMAB, IV INFUSION (80ML/HR)
     Route: 041
     Dates: start: 20180810, end: 20180823

REACTIONS (7)
  - Acute hepatic failure [Recovered/Resolved]
  - Off label use [Unknown]
  - Nausea [Unknown]
  - Vomiting [Unknown]
  - Jaundice [Unknown]
  - Hepatitis B reactivation [Recovered/Resolved]
  - Asthenia [Unknown]

NARRATIVE: CASE EVENT DATE: 20180726
